FAERS Safety Report 10516765 (Version 1)
Quarter: 2014Q4

REPORT INFORMATION
  Report Type: Spontaneous
  Country: US (occurrence: US)
  Receive Date: 20141014
  Receipt Date: 20141014
  Transmission Date: 20150528
  Serious: Yes (Other)
  Sender: FDA-Public Use
  Company Number: US-JNJFOC-20141001963

PATIENT

DRUGS (2)
  1. LEVAQUIN [Suspect]
     Active Substance: LEVOFLOXACIN
     Indication: INFECTION PROPHYLAXIS
     Route: 065
  2. LEVAQUIN [Suspect]
     Active Substance: LEVOFLOXACIN
     Indication: INFECTION
     Route: 065

REACTIONS (20)
  - Suicidal ideation [Unknown]
  - Memory impairment [Unknown]
  - Paralysis [Unknown]
  - Coma [Unknown]
  - Hallucination [Unknown]
  - Depressed level of consciousness [Unknown]
  - Loss of consciousness [Unknown]
  - Disorientation [Unknown]
  - Panic attack [Unknown]
  - Mitochondrial toxicity [Unknown]
  - Poliomyelitis [Unknown]
  - Feeling abnormal [Unknown]
  - Amnesia [Unknown]
  - Disturbance in attention [Unknown]
  - Delirium [Unknown]
  - Agitation [Unknown]
  - Substance-induced psychotic disorder [Unknown]
  - Paranoia [Unknown]
  - Off label use [Unknown]
  - Nervousness [Unknown]
